FAERS Safety Report 15395917 (Version 1)
Quarter: 2018Q3

REPORT INFORMATION
  Report Type: Spontaneous
  Country: US (occurrence: US)
  Receive Date: 20180912
  Receipt Date: 20180912
  Transmission Date: 20181010
  Serious: No
  Sender: FDA-Public Use
  Company Number: None

PATIENT
  Age: 32 Year
  Sex: Female
  Weight: 54.43 kg

DRUGS (2)
  1. PARAGARD T 380A [Suspect]
     Active Substance: COPPER
  2. DAILY VITAMINS [Concomitant]

REACTIONS (3)
  - Device expulsion [None]
  - Anovulatory cycle [None]
  - Menorrhagia [None]

NARRATIVE: CASE EVENT DATE: 20180717
